FAERS Safety Report 15888398 (Version 1)
Quarter: 2019Q1

REPORT INFORMATION
  Report Type: Spontaneous
  Country: US (occurrence: US)
  Receive Date: 20190130
  Receipt Date: 20190130
  Transmission Date: 20190417
  Serious: Yes (Disabling)
  Sender: FDA-Public Use
  Company Number: None

PATIENT
  Age: 58 Year
  Sex: Female
  Weight: 54 kg

DRUGS (5)
  1. VITAMIN B12 [Concomitant]
     Active Substance: CYANOCOBALAMIN
  2. VITAMIN D3 [Concomitant]
     Active Substance: CHOLECALCIFEROL
  3. PROLIA [Suspect]
     Active Substance: DENOSUMAB
     Indication: OSTEOPOROSIS
     Dosage: ?          QUANTITY:1 SYRINGE;OTHER FREQUENCY:SEMIANNUALLY;?
     Route: 030
  4. XIIDRA [Concomitant]
     Active Substance: LIFITEGRAST
  5. CA [Concomitant]

REACTIONS (3)
  - Blepharitis [None]
  - Inflammation [None]
  - Drug ineffective [None]

NARRATIVE: CASE EVENT DATE: 20171017
